FAERS Safety Report 18848456 (Version 1)
Quarter: 2021Q1

REPORT INFORMATION
  Report Type: Spontaneous
  Country: GB (occurrence: GB)
  Receive Date: 20210204
  Receipt Date: 20210204
  Transmission Date: 20210419
  Serious: Yes (Other)
  Sender: FDA-Public Use
  Company Number: GB-TEVA-2021-GB-1873218

PATIENT
  Age: 74 Year
  Sex: Male
  Weight: 108 kg

DRUGS (14)
  1. AMLODIPINE [Concomitant]
     Active Substance: AMLODIPINE BESYLATE
     Dosage: 1 DOSAGE FORMS DAILY;
     Route: 065
     Dates: start: 20200906
  2. DIPROBASE [Concomitant]
     Active Substance: CHLOROCRESOL
     Dosage: USE AS DIRECTED
     Route: 065
     Dates: start: 20200903
  3. DOXAZOSIN [Concomitant]
     Active Substance: DOXAZOSIN MESYLATE
     Dosage: 2 DOSAGE FORMS DAILY;
     Route: 065
     Dates: start: 20200906
  4. GLUCOPHAGE [Concomitant]
     Active Substance: METFORMIN HYDROCHLORIDE
     Dosage: 4 DOSAGE FORMS DAILY;
     Route: 048
     Dates: start: 20200906
  5. INDAPAMIDE. [Concomitant]
     Active Substance: INDAPAMIDE
     Dosage: 1 DOSAGE FORMS DAILY;  EACH MORNING
     Route: 065
     Dates: start: 20200424
  6. LEVOTHYROXINE. [Concomitant]
     Active Substance: LEVOTHYROXINE
     Dosage: 1 DOSAGE FORMS DAILY; EACH MORNING
     Route: 065
     Dates: start: 20200906
  7. LISINOPRIL. [Concomitant]
     Active Substance: LISINOPRIL
     Dosage: 2 DOSAGE FORMS DAILY;
     Route: 065
     Dates: start: 20200906
  8. NOVORAPID [Concomitant]
     Active Substance: INSULIN ASPART
     Dosage: USE AS DIRECTED
     Route: 065
     Dates: start: 20200906
  9. ONBREZ  BREEZHALER [Concomitant]
     Active Substance: INDACATEROL
     Dosage: 1 DOSAGE FORMS DAILY;
     Route: 055
     Dates: start: 20201202
  10. OMEPRAZOLE. [Concomitant]
     Active Substance: OMEPRAZOLE
     Dosage: 1 DOSAGE FORMS DAILY;
     Route: 065
     Dates: start: 20201002
  11. LEVEMIR [Concomitant]
     Active Substance: INSULIN DETEMIR
     Dosage: USE AS DIRECTED
     Route: 065
     Dates: start: 20200906
  12. ATORVASTATIN [Suspect]
     Active Substance: ATORVASTATIN
     Dosage: 40 MILLIGRAM DAILY;
     Route: 048
     Dates: start: 20200906, end: 20201223
  13. SALBUTAMOL [Concomitant]
     Active Substance: ALBUTEROL
     Route: 055
     Dates: start: 20201202
  14. SIMVASTATIN. [Concomitant]
     Active Substance: SIMVASTATIN
     Dosage: 1 DOSAGE FORMS DAILY; AT NIGHT
     Route: 065
     Dates: start: 20210118

REACTIONS (1)
  - Gynaecomastia [Recovered/Resolved]
